FAERS Safety Report 20069272 (Version 1)
Quarter: 2021Q4

REPORT INFORMATION
  Report Type: Spontaneous
  Country: US (occurrence: US)
  Receive Date: 20211115
  Receipt Date: 20211115
  Transmission Date: 20220304
  Serious: No
  Sender: FDA-Public Use
  Company Number: US-APOTEX-2021AP010046

PATIENT
  Age: 46 Year
  Sex: Female

DRUGS (2)
  1. GABAPENTIN [Suspect]
     Active Substance: GABAPENTIN
     Indication: Eye pain
     Dosage: 600 MILLIGRAM, TID
     Route: 048
  2. PREGABALIN [Suspect]
     Active Substance: PREGABALIN
     Indication: Eye pain
     Dosage: UNK
     Route: 048

REACTIONS (2)
  - Adverse drug reaction [Unknown]
  - Drug ineffective [Unknown]
